FAERS Safety Report 14479069 (Version 1)
Quarter: 2018Q1

REPORT INFORMATION
  Report Type: Report from Study
  Country: None (occurrence: US)
  Receive Date: 20180202
  Receipt Date: 20180202
  Transmission Date: 20180509
  Serious: Yes (Hospitalization)
  Sender: FDA-Public Use
  Company Number: US-ABBVIE-17K-163-1944679-00

PATIENT
  Age: 64 Year
  Sex: Male

DRUGS (1)
  1. HUMIRA [Suspect]
     Active Substance: ADALIMUMAB
     Indication: PSORIASIS
     Route: 058
     Dates: end: 201702

REACTIONS (5)
  - Spinal column injury [Unknown]
  - Fall [Unknown]
  - Localised infection [Unknown]
  - Osteoporosis [Unknown]
  - Infection [Unknown]

NARRATIVE: CASE EVENT DATE: 201701
